FAERS Safety Report 7222067-8 (Version None)
Quarter: 2011Q1

REPORT INFORMATION
  Report Type: 
  Country: None (occurrence: None)
  Receive Date: 20110103
  Receipt Date: 20101215
  Transmission Date: 20110831
  Serious: Yes (Hospitalization, Other)
  Sender: FDA-Public Use
  Company Number: 020901

PATIENT
  Sex: Female
  Weight: 70.3 kg

DRUGS (7)
  1. NEXIUM [Concomitant]
  2. CIMZIA [Suspect]
     Indication: CROHN'S DISEASE
     Dosage: 400 MG 1X/2 WEEKS SUBCUTANEOUS, 400 MG 1X/4 WEEKS SUBCUTANEOUS
     Route: 058
     Dates: start: 20100201
  3. VITAMIN D [Concomitant]
  4. CALCIUM WITH VITAMIN D [Concomitant]
  5. FOLIC ACID [Concomitant]
  6. METHOTREXATE [Concomitant]
  7. MULTI-VITAMINS [Concomitant]

REACTIONS (3)
  - CROHN'S DISEASE [None]
  - DISEASE PROGRESSION [None]
  - COLONIC OBSTRUCTION [None]
